FAERS Safety Report 18439892 (Version 6)
Quarter: 2022Q2

REPORT INFORMATION
  Report Type: Spontaneous
  Country: IT (occurrence: IT)
  Receive Date: 20201029
  Receipt Date: 20220418
  Transmission Date: 20220721
  Serious: Yes (Hospitalization, Other)
  Sender: FDA-Public Use
  Company Number: IT-SA-2020SA275315

PATIENT
  Age: 27 Year
  Sex: Male

DRUGS (20)
  1. PREDNISONE [Suspect]
     Active Substance: PREDNISONE
     Indication: Immunosuppressant drug therapy
     Dosage: UNK
     Route: 065
     Dates: end: 201907
  2. PREDNISONE [Suspect]
     Active Substance: PREDNISONE
     Indication: Liver transplant
     Dosage: UNK
     Dates: start: 201907
  3. PREDNISONE [Suspect]
     Active Substance: PREDNISONE
     Dosage: UNK
     Route: 065
  4. PREDNISONE [Suspect]
     Active Substance: PREDNISONE
     Dosage: UNK
     Route: 065
  5. TACROLIMUS [Interacting]
     Active Substance: TACROLIMUS
     Indication: Immunosuppressant drug therapy
     Dosage: 4 MG/DAY, TWICE DAILY
     Route: 065
     Dates: start: 201907, end: 202003
  6. TACROLIMUS [Interacting]
     Active Substance: TACROLIMUS
     Indication: Liver transplant
     Dosage: 1 MG, QD
     Route: 065
     Dates: start: 20200328, end: 202003
  7. TACROLIMUS [Interacting]
     Active Substance: TACROLIMUS
     Dosage: UNK
     Route: 065
     Dates: start: 2020
  8. TACROLIMUS [Interacting]
     Active Substance: TACROLIMUS
     Dosage: 4 MILLIGRAM
  9. TACROLIMUS [Interacting]
     Active Substance: TACROLIMUS
     Dosage: 1 MILLIGRAM
  10. TACROLIMUS [Interacting]
     Active Substance: TACROLIMUS
     Dosage: UNK UNK, TWICE DAILY
     Route: 065
     Dates: start: 20200406
  11. TACROLIMUS [Interacting]
     Active Substance: TACROLIMUS
     Dosage: DOSE REDUCED
     Route: 065
     Dates: start: 201907, end: 20200327
  12. TACROLIMUS [Interacting]
     Active Substance: TACROLIMUS
     Dosage: 1 MG/DAY, TWICE DAILY
     Route: 065
     Dates: start: 202003, end: 202003
  13. RITONAVIR [Interacting]
     Active Substance: RITONAVIR
     Indication: COVID-19
     Dosage: UNK
     Route: 048
     Dates: start: 20200327, end: 20200403
  14. DARUNAVIR [Interacting]
     Active Substance: DARUNAVIR
     Indication: COVID-19
     Dosage: UNK
     Route: 065
     Dates: start: 20200327, end: 20200403
  15. HYDROXYCHLOROQUINE [Interacting]
     Active Substance: HYDROXYCHLOROQUINE
     Indication: COVID-19
     Dosage: UNK
     Route: 065
     Dates: start: 202003
  16. HYDROXYCHLOROQUINE [Interacting]
     Active Substance: HYDROXYCHLOROQUINE
     Dosage: UNK
     Route: 065
     Dates: start: 20200327, end: 20200406
  17. DARUNAVIR\RITONAVIR [Interacting]
     Active Substance: DARUNAVIR\RITONAVIR
     Indication: COVID-19
     Dosage: UNK
     Route: 048
     Dates: start: 20200327, end: 20200403
  18. HYDROXYCHLOROQUINE [Concomitant]
     Active Substance: HYDROXYCHLOROQUINE
     Indication: COVID-19
     Dosage: UNK
  19. HYDROXYCHLOROQUINE [Concomitant]
     Active Substance: HYDROXYCHLOROQUINE
     Dosage: UNK
     Dates: start: 20200326
  20. PREDNISONE [Concomitant]
     Active Substance: PREDNISONE
     Indication: Immunosuppressant drug therapy
     Dosage: UNK
     Dates: start: 201804

REACTIONS (11)
  - COVID-19 [Recovered/Resolved]
  - Anosmia [Recovered/Resolved]
  - Acute kidney injury [Recovered/Resolved]
  - Immunosuppressant drug level increased [Recovered/Resolved]
  - Ageusia [Recovered/Resolved]
  - Pyrexia [Recovered/Resolved]
  - Toxicity to various agents [Recovered/Resolved]
  - Drug interaction [Recovered/Resolved]
  - Off label use [Unknown]
  - Therapeutic response unexpected [Unknown]
  - Intentional product misuse [Unknown]

NARRATIVE: CASE EVENT DATE: 20200101
